FAERS Safety Report 6108418-6 (Version None)
Quarter: 2009Q1

REPORT INFORMATION
  Report Type: 
  Country: None (occurrence: None)
  Receive Date: 20090309
  Receipt Date: 20090226
  Transmission Date: 20090719
  Serious: Yes (Death, Other)
  Sender: FDA-Public Use
  Company Number: PH-BAXTER-2009BH003388

PATIENT
  Age: 40 Year
  Sex: Male

DRUGS (1)
  1. DIANEAL [Suspect]
     Indication: RENAL FAILURE
     Route: 033
     Dates: start: 20000101, end: 20081225

REACTIONS (3)
  - CARDIAC ARREST [None]
  - CARDIOMEGALY [None]
  - RENAL FAILURE CHRONIC [None]
